FAERS Safety Report 19726283 (Version 4)
Quarter: 2022Q4

REPORT INFORMATION
  Report Type: Other
  Country: US (occurrence: None)
  Receive Date: 20210819
  Receipt Date: 20221111
  Transmission Date: 20230113
  Serious: Yes (Hospitalization)
  Sender: FDA-Public Use
  Company Number: US-ROCHE-2716134

PATIENT
  Age: 86 Year
  Sex: Female

DRUGS (77)
  1. ACTEMRA [Suspect]
     Active Substance: TOCILIZUMAB
     Indication: Arteritis
     Route: 058
  2. ACTEMRA [Suspect]
     Active Substance: TOCILIZUMAB
  3. ACTEMRA [Suspect]
     Active Substance: TOCILIZUMAB
  4. ACTEMRA [Suspect]
     Active Substance: TOCILIZUMAB
     Indication: Vasculitis
     Route: 058
  5. ACTEMRA [Suspect]
     Active Substance: TOCILIZUMAB
     Indication: Arthritis
     Route: 058
  6. ACTEMRA [Suspect]
     Active Substance: TOCILIZUMAB
  7. BIOFREEZE (UNITED STATES) [Concomitant]
     Dates: start: 20210714
  8. BIOFREEZE (UNITED STATES) [Concomitant]
     Dates: start: 20211109
  9. BIOFREEZE (UNITED STATES) [Concomitant]
     Dates: start: 20221008
  10. BISACODYL [Concomitant]
     Active Substance: BISACODYL
     Dosage: 5 MG
     Dates: start: 20210714
  11. BISACODYL [Concomitant]
     Active Substance: BISACODYL
     Dates: start: 20211109
  12. BISACODYL [Concomitant]
     Active Substance: BISACODYL
     Dates: start: 20221008
  13. COLACE [Concomitant]
     Active Substance: DOCUSATE SODIUM
     Dosage: 100 MG QD
     Dates: start: 20210714
  14. COLACE [Concomitant]
     Active Substance: DOCUSATE SODIUM
     Dates: start: 20211109
  15. COLACE [Concomitant]
     Active Substance: DOCUSATE SODIUM
     Dates: start: 20221008
  16. CYMBALTA [Concomitant]
     Active Substance: DULOXETINE HYDROCHLORIDE
     Dosage: 60 MG QD
     Dates: start: 20210714
  17. CYMBALTA [Concomitant]
     Active Substance: DULOXETINE HYDROCHLORIDE
     Dates: start: 20211109
  18. CYMBALTA [Concomitant]
     Active Substance: DULOXETINE HYDROCHLORIDE
     Dates: start: 20221008
  19. GABAPENTIN [Concomitant]
     Active Substance: GABAPENTIN
     Dosage: 300 MG
     Dates: start: 20210714
  20. GABAPENTIN [Concomitant]
     Active Substance: GABAPENTIN
     Dates: start: 20211109
  21. GABAPENTIN [Concomitant]
     Active Substance: GABAPENTIN
     Dates: start: 20221008
  22. GLYCOGEN [Concomitant]
     Dosage: 1 MG
     Dates: start: 20210714
  23. GLYCOGEN [Concomitant]
     Dates: start: 20211109
  24. GLYCOGEN [Concomitant]
     Dates: start: 20221008
  25. GUAIFENESIN [Concomitant]
     Active Substance: GUAIFENESIN
     Dosage: SOLUTION 10 MG
     Dates: start: 20210714
  26. GUAIFENESIN [Concomitant]
     Active Substance: GUAIFENESIN
     Dates: start: 20211009
  27. GUAIFENESIN [Concomitant]
     Active Substance: GUAIFENESIN
     Dates: start: 20221008
  28. HYDROCODONE [Concomitant]
     Active Substance: HYDROCODONE
     Dosage: 10-325 MG
     Dates: start: 20210714
  29. HYDROCODONE [Concomitant]
     Active Substance: HYDROCODONE
     Dates: start: 20211009
  30. IBUPROFEN [Concomitant]
     Active Substance: IBUPROFEN
     Dosage: 200 MG
     Dates: start: 20210714
  31. ALBUTEROL\IPRATROPIUM [Concomitant]
     Active Substance: ALBUTEROL\IPRATROPIUM
     Dosage: 0.5-2.5
     Dates: start: 20210714
  32. ALBUTEROL\IPRATROPIUM [Concomitant]
     Active Substance: ALBUTEROL\IPRATROPIUM
     Dates: start: 20211009
  33. ALBUTEROL\IPRATROPIUM [Concomitant]
     Active Substance: ALBUTEROL\IPRATROPIUM
     Dates: start: 20221008
  34. LEVOTHYROXINE SODIUM [Concomitant]
     Active Substance: LEVOTHYROXINE SODIUM
     Dosage: 175 MCG QD
     Dates: start: 20210714
  35. LEVOTHYROXINE SODIUM [Concomitant]
     Active Substance: LEVOTHYROXINE SODIUM
     Dates: start: 20211009
  36. LEVOTHYROXINE SODIUM [Concomitant]
     Active Substance: LEVOTHYROXINE SODIUM
     Dates: start: 20221008
  37. LOPERAMIDE HYDROCHLORIDE [Concomitant]
     Active Substance: LOPERAMIDE HYDROCHLORIDE
     Dosage: 2 MG
     Dates: start: 20210714
  38. LOPERAMIDE HYDROCHLORIDE [Concomitant]
     Active Substance: LOPERAMIDE HYDROCHLORIDE
     Dates: start: 20211009
  39. METOPROLOL TARTRATE [Concomitant]
     Active Substance: METOPROLOL TARTRATE
     Dosage: 25 MG
     Dates: start: 20210714
  40. METOPROLOL TARTRATE [Concomitant]
     Active Substance: METOPROLOL TARTRATE
     Dosage: BID
     Dates: start: 20211009
  41. METOPROLOL TARTRATE [Concomitant]
     Active Substance: METOPROLOL TARTRATE
     Dates: start: 20221008
  42. MILK OF MAGNESIA [Concomitant]
     Active Substance: MAGNESIUM HYDROXIDE
     Dosage: 400 MG
     Dates: start: 20210714
  43. MILK OF MAGNESIA [Concomitant]
     Active Substance: MAGNESIUM HYDROXIDE
     Dates: start: 20211009
  44. MILK OF MAGNESIA [Concomitant]
     Active Substance: MAGNESIUM HYDROXIDE
     Dates: start: 20221008
  45. MIRTAZAPINE [Concomitant]
     Active Substance: MIRTAZAPINE
     Dosage: 7.5 MG
     Dates: start: 20210714
  46. MIRTAZAPINE [Concomitant]
     Active Substance: MIRTAZAPINE
     Dates: start: 20211009
  47. PANTOPRAZOLE SODIUM [Concomitant]
     Active Substance: PANTOPRAZOLE SODIUM
     Dosage: 20 MG
     Dates: start: 20210714
  48. POLYETHYLENE GLYCOL [Concomitant]
     Active Substance: POLYETHYLENE GLYCOL
     Dates: start: 20210714
  49. POLYETHYLENE GLYCOL [Concomitant]
     Active Substance: POLYETHYLENE GLYCOL
     Dates: start: 20211009
  50. POLYETHYLENE GLYCOL [Concomitant]
     Active Substance: POLYETHYLENE GLYCOL
     Dates: start: 20221008
  51. POTASSIUM CHLORIDE [Concomitant]
     Active Substance: POTASSIUM CHLORIDE
     Dates: start: 20210714
  52. POTASSIUM CHLORIDE [Concomitant]
     Active Substance: POTASSIUM CHLORIDE
     Dates: start: 20211009
  53. POTASSIUM CHLORIDE [Concomitant]
     Active Substance: POTASSIUM CHLORIDE
     Dates: start: 20221008
  54. ROSUVASTATIN [Concomitant]
     Active Substance: ROSUVASTATIN
     Dosage: 10 MG
     Dates: start: 20210714
  55. SENNA TABS [Concomitant]
     Active Substance: SENNOSIDES A AND B
     Dosage: 2.6 MG
     Dates: start: 20210714
  56. SENNA TABS [Concomitant]
     Active Substance: SENNOSIDES A AND B
     Dates: start: 20211009
  57. SENNA TABS [Concomitant]
     Active Substance: SENNOSIDES A AND B
     Dates: start: 20221008
  58. TRAZODONE HCL [Concomitant]
     Active Substance: TRAZODONE HYDROCHLORIDE
     Dosage: 100 MG
     Dates: start: 20210714
  59. TRAZODONE HCL [Concomitant]
     Active Substance: TRAZODONE HYDROCHLORIDE
     Dates: start: 20211009
  60. TRAZODONE HCL [Concomitant]
     Active Substance: TRAZODONE HYDROCHLORIDE
     Dates: start: 20221008
  61. TRESIBA [Concomitant]
     Active Substance: INSULIN DEGLUDEC
     Dosage: 100 ML
     Dates: start: 20210714
  62. TRESIBA [Concomitant]
     Active Substance: INSULIN DEGLUDEC
     Dates: start: 20211009
  63. TRESIBA [Concomitant]
     Active Substance: INSULIN DEGLUDEC
     Dates: start: 20221008
  64. WELLBUTRIN [Concomitant]
     Active Substance: BUPROPION HYDROCHLORIDE
  65. ASPIRIN [Concomitant]
     Active Substance: ASPIRIN
     Dosage: 8 MG QD
     Dates: start: 20210714
  66. ASPIRIN [Concomitant]
     Active Substance: ASPIRIN
     Dates: start: 20211009
  67. ASPIRIN [Concomitant]
     Active Substance: ASPIRIN
     Dates: start: 20221008
  68. MELATONIN [Concomitant]
     Active Substance: MELATONIN
     Dates: start: 20211009
  69. MELATONIN [Concomitant]
     Active Substance: MELATONIN
     Dates: start: 20221008
  70. OMEPRAZOLE [Concomitant]
     Active Substance: OMEPRAZOLE
     Dosage: 20 MG QD
     Dates: start: 20211009
  71. OMEPRAZOLE [Concomitant]
     Active Substance: OMEPRAZOLE
     Dates: start: 20221008
  72. ROBAXIN [Concomitant]
     Active Substance: METHOCARBAMOL
     Dates: start: 20221008
  73. TYLENOL [Concomitant]
     Active Substance: ACETAMINOPHEN
     Dosage: TID
     Dates: start: 20211009
  74. TYLENOL [Concomitant]
     Active Substance: ACETAMINOPHEN
     Dates: start: 20221008
  75. LOSARTAN [Concomitant]
     Active Substance: LOSARTAN
     Dosage: 50 MG
     Dates: start: 20221008
  76. NOVALGIN (METAMIZOLE SODIUM) [Concomitant]
     Active Substance: METAMIZOLE SODIUM
     Dates: start: 20221008
  77. ZOFRAN [Concomitant]
     Active Substance: ONDANSETRON HYDROCHLORIDE
     Dates: start: 20221008

REACTIONS (3)
  - Hip fracture [Unknown]
  - COVID-19 [Unknown]
  - Off label use [Unknown]
